FAERS Safety Report 9980208 (Version 1)
Quarter: 2014Q1

REPORT INFORMATION
  Report Type: Report from Study
  Country: US (occurrence: US)
  Receive Date: 20140307
  Receipt Date: 20140307
  Transmission Date: 20141002
  Serious: No
  Sender: FDA-Public Use
  Company Number: US-ABBVIE-13P-163-1175187-00

PATIENT
  Age: 55 Year
  Sex: Female
  Weight: 52.21 kg

DRUGS (8)
  1. HUMIRA [Suspect]
     Indication: RHEUMATOID ARTHRITIS
     Dates: start: 20131123
  2. METHOTREXATE [Concomitant]
     Indication: RHEUMATOID ARTHRITIS
  3. PLAQUENIL [Concomitant]
     Indication: RHEUMATOID ARTHRITIS
  4. FOLIC ACID [Concomitant]
     Indication: DRUG THERAPY
  5. MULTIVITAMIN [Concomitant]
     Indication: VITAMIN SUPPLEMENTATION
  6. CALCIUM [Concomitant]
     Indication: VITAMIN SUPPLEMENTATION
  7. CALCIUM [Concomitant]
     Indication: MINERAL SUPPLEMENTATION
  8. VITAMIN D-1000 [Concomitant]
     Indication: VITAMIN SUPPLEMENTATION

REACTIONS (1)
  - Back pain [Recovered/Resolved]
